FAERS Safety Report 9472881 (Version 2)
Quarter: 2013Q3

REPORT INFORMATION
  Report Type: Spontaneous
  Country: US (occurrence: US)
  Receive Date: 20130823
  Receipt Date: 20130919
  Transmission Date: 20140515
  Serious: No
  Sender: FDA-Public Use
  Company Number: US-PFIZER INC-2013240973

PATIENT
  Age: 78 Year
  Sex: Male
  Weight: 76.64 kg

DRUGS (2)
  1. ZYVOX [Suspect]
     Indication: OSTEOMYELITIS
     Dosage: 1 DF, 2X/DAY
     Route: 048
     Dates: start: 201308
  2. METFORMIN [Concomitant]
     Indication: TYPE 2 DIABETES MELLITUS
     Dosage: UNK

REACTIONS (6)
  - Nausea [Unknown]
  - Abdominal pain upper [Unknown]
  - Dizziness [Unknown]
  - Asthenia [Unknown]
  - Diarrhoea [Unknown]
  - Faeces discoloured [Unknown]
